FAERS Safety Report 9103264 (Version 1)
Quarter: 2013Q1

REPORT INFORMATION
  Report Type: Spontaneous
  Country: US (occurrence: US)
  Receive Date: 20130219
  Receipt Date: 20130219
  Transmission Date: 20140127
  Serious: Yes (Other)
  Sender: FDA-Public Use
  Company Number: US-RB-049772-13

PATIENT
  Age: 10 Year
  Sex: Male

DRUGS (2)
  1. MUCINEX FOR KIDS [Suspect]
     Indication: PRODUCT USED FOR UNKNOWN INDICATION
     Dosage: GAVE ONE 5 TO 10ML DOSE ON ??-JAN-2013
     Route: 048
  2. MUCINEX FOR KIDS [Suspect]

REACTIONS (2)
  - Hallucination [Recovered/Resolved]
  - Nightmare [Recovered/Resolved]
